FAERS Safety Report 12306185 (Version 2)
Quarter: 2016Q3

REPORT INFORMATION
  Report Type: Spontaneous
  Country: US (occurrence: US)
  Receive Date: 20160426
  Receipt Date: 20160706
  Transmission Date: 20161109
  Serious: No
  Sender: FDA-Public Use
  Company Number: US-PFIZER INC-2016219578

PATIENT
  Age: 41 Year
  Sex: Female
  Weight: 86 kg

DRUGS (3)
  1. ALLEGRA D 24 HOUR [Concomitant]
     Dosage: UNK
     Dates: start: 2006
  2. MEDROXYPROGESTERONE ACETATE. [Suspect]
     Active Substance: MEDROXYPROGESTERONE ACETATE
     Indication: HORMONE LEVEL ABNORMAL
     Dosage: 1 DF, EVERY 84 DAYS
     Route: 030
     Dates: start: 1997
  3. MEDROXYPROGESTERONE ACETATE. [Suspect]
     Active Substance: MEDROXYPROGESTERONE ACETATE
     Indication: MENSTRUAL DISCOMFORT

REACTIONS (2)
  - Product use issue [Unknown]
  - Chloasma [Recovered/Resolved]

NARRATIVE: CASE EVENT DATE: 1997
